FAERS Safety Report 14169739 (Version 3)
Quarter: 2017Q4

REPORT INFORMATION
  Report Type: Spontaneous
  Country: NZ (occurrence: NZ)
  Receive Date: 20171108
  Receipt Date: 20171221
  Transmission Date: 20180321
  Serious: Yes (Death)
  Sender: FDA-Public Use
  Company Number: NZ-NAPPMUNDI-GBR-2017-0045121

PATIENT
  Age: 87 Year
  Sex: Female

DRUGS (5)
  1. CLONAZEPAM. [Concomitant]
     Active Substance: CLONAZEPAM
     Indication: NECK PAIN
     Dosage: UNK
     Route: 065
     Dates: end: 20160223
  2. CODEINE [Concomitant]
     Active Substance: CODEINE
     Indication: BACK PAIN
  3. CODEINE [Concomitant]
     Active Substance: CODEINE
     Indication: NECK PAIN
     Dosage: UNK
     Route: 065
  4. NORSPAN [Suspect]
     Active Substance: BUPRENORPHINE
     Indication: BACK PAIN
     Dosage: 5 MCG, Q1H
     Route: 062
     Dates: start: 20170224, end: 20170225
  5. CLONAZEPAM. [Concomitant]
     Active Substance: CLONAZEPAM
     Indication: BACK PAIN

REACTIONS (3)
  - Unresponsive to stimuli [Fatal]
  - Sedation [Fatal]
  - Brain hypoxia [Fatal]

NARRATIVE: CASE EVENT DATE: 20170225
